FAERS Safety Report 6646034-8 (Version None)
Quarter: 2010Q1

REPORT INFORMATION
  Report Type: 
  Country: None (occurrence: None)
  Receive Date: 20100323
  Receipt Date: 20100317
  Transmission Date: 20100710
  Serious: Yes (Other)
  Sender: FDA-Public Use
  Company Number: AU-PFIZER INC-2010026998

PATIENT
  Age: 50 Year
  Sex: Male

DRUGS (6)
  1. VIAGRA [Suspect]
     Dosage: 100 MG, UNK
     Dates: start: 20100101
  2. VOLTAREN [Concomitant]
     Dosage: 50 MG, UNK
  3. NUROFEN [Concomitant]
     Dosage: UNK
  4. PANADEINE CO [Concomitant]
  5. SIMVASTATIN [Concomitant]
     Dosage: UNK
  6. TEMAZEPAM [Concomitant]
     Dosage: UNK

REACTIONS (8)
  - ANXIETY [None]
  - DIZZINESS [None]
  - DRUG INEFFECTIVE [None]
  - GAIT DISTURBANCE [None]
  - HEADACHE [None]
  - HYPERHIDROSIS [None]
  - OEDEMA PERIPHERAL [None]
  - RASH MACULAR [None]
